FAERS Safety Report 7512597-3 (Version None)
Quarter: 2011Q2

REPORT INFORMATION
  Report Type: 
  Country: None (occurrence: None)
  Receive Date: 20110525
  Receipt Date: 20110525
  Transmission Date: 20111010
  Serious: Yes (Death)
  Sender: FDA-Public Use
  Company Number: None

PATIENT
  Age: 63 Year
  Sex: Female

DRUGS (8)
  1. DEXAMETHASONE [Concomitant]
  2. EPOETIN [Concomitant]
  3. LACTULOSE [Concomitant]
  4. METOPROLOL SUCCINATE [Concomitant]
  5. REVLIMID [Suspect]
     Indication: MULTIPLE MYELOMA
     Dosage: 25MG DAILY ORALLY
     Route: 048
     Dates: start: 20100201, end: 20100801
  6. MORPHINE SULFATE [Concomitant]
  7. AMLODIPINE [Concomitant]
  8. POTASSIUM CHLORIDE [Concomitant]

REACTIONS (1)
  - DEATH [None]
